FAERS Safety Report 4993275-1 (Version None)
Quarter: 2006Q1

REPORT INFORMATION
  Report Type: 
  Country: None (occurrence: None)
  Receive Date: 20060314
  Receipt Date: 20050808
  Transmission Date: 20060701
  Serious: Yes (Other)
  Sender: FDA-Public Use
  Company Number: 200512026BCC

PATIENT
  Age: 57 Year
  Sex: Female
  Weight: 90.7194 kg

DRUGS (2)
  1. ALEVE [Suspect]
     Indication: ARTHRALGIA
     Dosage: 660 + 440 MG, TOTAL DAILY, ORAL
     Route: 048
     Dates: start: 20050419, end: 20050420
  2. ALEVE [Suspect]
     Indication: ARTHRALGIA
     Dosage: 660 + 440 MG, TOTAL DAILY, ORAL
     Route: 048
     Dates: start: 20050418

REACTIONS (2)
  - ABDOMINAL PAIN UPPER [None]
  - BLOOD URINE PRESENT [None]
